FAERS Safety Report 10475249 (Version 1)
Quarter: 2014Q3

REPORT INFORMATION
  Report Type: Report from Study
  Country: GB (occurrence: GB)
  Receive Date: 20140925
  Receipt Date: 20140925
  Transmission Date: 20150326
  Serious: Yes (Other)
  Sender: FDA-Public Use
  Company Number: GB-ROCHE-1465577

PATIENT

DRUGS (3)
  1. MITOMYCIN C [Suspect]
     Active Substance: MITOMYCIN
     Indication: BLADDER CANCER
     Dosage: DAY 1
     Route: 065
  2. CAPECITABINE [Suspect]
     Active Substance: CAPECITABINE
     Indication: BLADDER CANCER
     Route: 065
  3. CISPLATIN. [Suspect]
     Active Substance: CISPLATIN
     Indication: BLADDER CANCER
     Route: 065

REACTIONS (4)
  - Gastrointestinal toxicity [Unknown]
  - Thrombocytopenia [Unknown]
  - Toxicity to various agents [Unknown]
  - Bone marrow failure [Unknown]
